FAERS Safety Report 7974922-9 (Version None)
Quarter: 2011Q4

REPORT INFORMATION
  Report Type: 
  Country: None (occurrence: None)
  Receive Date: 20111213
  Receipt Date: 20111020
  Transmission Date: 20120403
  Serious: No
  Sender: FDA-Public Use
  Company Number: US-AMGEN-USASP2011054432

PATIENT
  Age: 50 Year
  Sex: Female

DRUGS (2)
  1. ENBREL [Suspect]
     Indication: ANKYLOSING SPONDYLITIS
     Dosage: 50 MG, QWK
     Dates: start: 20110818
  2. METHOTREXATE [Concomitant]
     Dosage: 2.5 MG TABLETS, BY MOUTH, WEEKLY
     Route: 048

REACTIONS (9)
  - SINUSITIS [None]
  - HEADACHE [None]
  - ARTHRALGIA [None]
  - CHILLS [None]
  - TOOTH FRACTURE [None]
  - NECK PAIN [None]
  - MUSCULOSKELETAL PAIN [None]
  - BACK PAIN [None]
  - INCREASED UPPER AIRWAY SECRETION [None]
